FAERS Safety Report 9900103 (Version 2)
Quarter: 2014Q1

REPORT INFORMATION
  Report Type: Spontaneous
  Country: US (occurrence: US)
  Receive Date: 20140214
  Receipt Date: 20140214
  Transmission Date: 20141002
  Serious: Yes (Disabling)
  Sender: FDA-Public Use
  Company Number: US-GE HEALTHCARE MEDICAL DIAGNOSTICS-OSCN-PR-0906S-0291

PATIENT
  Age: 75 Year
  Sex: Male

DRUGS (3)
  1. OMNISCAN [Suspect]
     Indication: NERVOUS SYSTEM DISORDER
     Route: 042
     Dates: start: 19980316, end: 19980316
  2. OMNISCAN [Suspect]
     Indication: RENAL ARTERY STENOSIS
     Route: 042
     Dates: start: 20050425, end: 20050425
  3. OPTIMARK [Suspect]
     Indication: PANCREATIC MASS
     Route: 042
     Dates: start: 20050912, end: 20050912

REACTIONS (1)
  - Nephrogenic systemic fibrosis [Not Recovered/Not Resolved]
